FAERS Safety Report 8313121-8 (Version None)
Quarter: 2012Q2

REPORT INFORMATION
  Report Type: 
  Country: None (occurrence: None)
  Receive Date: 20120426
  Receipt Date: 20120420
  Transmission Date: 20120825
  Serious: Yes (Other)
  Sender: FDA-Public Use
  Company Number: JP-PFIZER INC-2012098761

PATIENT
  Age: 45 Year
  Sex: Female

DRUGS (3)
  1. DEPAKENE [Concomitant]
  2. RELPAX [Suspect]
     Dosage: 20 MG, 1X/DAY
     Route: 048
  3. AMITRIPTYLINE HCL [Concomitant]

REACTIONS (1)
  - OROPHARYNGEAL BLISTERING [None]
